FAERS Safety Report 12570376 (Version 3)
Quarter: 2016Q3

REPORT INFORMATION
  Report Type: Spontaneous
  Country: US (occurrence: US)
  Receive Date: 20160719
  Receipt Date: 20160905
  Transmission Date: 20161109
  Serious: No
  Sender: FDA-Public Use
  Company Number: US-PFIZER INC-2016316149

PATIENT
  Age: 46 Year
  Sex: Male
  Weight: 92.99 kg

DRUGS (4)
  1. VIAGRA [Suspect]
     Active Substance: SILDENAFIL CITRATE
     Dosage: 50 MG, AS NEEDED (1 TAB DAILY PRN)
     Route: 048
     Dates: start: 20160418
  2. VIAGRA [Suspect]
     Active Substance: SILDENAFIL CITRATE
     Dosage: 50 MG, AS NEEDED (1 TAB DAILY PRN)
     Route: 048
     Dates: start: 20160502
  3. VIAGRA [Suspect]
     Active Substance: SILDENAFIL CITRATE
     Indication: ERECTILE DYSFUNCTION
     Dosage: 50 MG, AS NEEDED
     Route: 048
     Dates: start: 201605
  4. CYMBALTA [Concomitant]
     Active Substance: DULOXETINE HYDROCHLORIDE
     Indication: DEPRESSION
     Dosage: 60MG CAPSULE BY MOUTH EVERYDAY
     Route: 048

REACTIONS (5)
  - Headache [Recovered/Resolved]
  - Nightmare [Recovered/Resolved]
  - Flushing [Recovered/Resolved]
  - Nasal congestion [Not Recovered/Not Resolved]
  - Blood cholesterol increased [Unknown]

NARRATIVE: CASE EVENT DATE: 201605
